FAERS Safety Report 24654425 (Version 2)
Quarter: 2025Q1

REPORT INFORMATION
  Report Type: Report from Study
  Country: US (occurrence: US)
  Receive Date: 20241122
  Receipt Date: 20250207
  Transmission Date: 20250409
  Serious: Yes (Other)
  Sender: TAKEDA
  Company Number: US-TAKEDA-2024TUS096407

PATIENT
  Sex: Female
  Weight: 60.77 kg

DRUGS (3)
  1. FRUQUINTINIB [Suspect]
     Active Substance: FRUQUINTINIB
     Indication: Colon cancer
  2. FRUQUINTINIB [Suspect]
     Active Substance: FRUQUINTINIB
     Indication: Cholangiocarcinoma
  3. FRUQUINTINIB [Suspect]
     Active Substance: FRUQUINTINIB
     Indication: Metastases to liver

REACTIONS (11)
  - Cataract [Unknown]
  - Somnolence [Unknown]
  - Off label use [Unknown]
  - Electrocardiogram abnormal [Unknown]
  - Nasal dryness [Unknown]
  - Gastrointestinal sounds abnormal [Unknown]
  - Rhinorrhoea [Unknown]
  - Abdominal pain upper [Recovered/Resolved]
  - Aphonia [Unknown]
  - Diarrhoea [Not Recovered/Not Resolved]
  - Fatigue [Unknown]
